FAERS Safety Report 19468385 (Version 2)
Quarter: 2022Q1

REPORT INFORMATION
  Report Type: Spontaneous
  Country: US (occurrence: US)
  Receive Date: 20210628
  Receipt Date: 20220103
  Transmission Date: 20220424
  Serious: No
  Sender: FDA-Public Use
  Company Number: US-VERTEX PHARMACEUTICALS-2021-009633

PATIENT
  Age: 6 Year
  Sex: Male

DRUGS (14)
  1. SYMDEKO [Suspect]
     Active Substance: IVACAFTOR\TEZACAFTOR
     Indication: Cystic fibrosis
     Dosage: 1 DOSAGE FORM, BID
     Route: 048
     Dates: start: 20201118
  2. ALBUTEROL SULFATE [Concomitant]
     Active Substance: ALBUTEROL SULFATE
     Indication: Cough
     Dosage: 108 (90 BASE) MCG/ACT INHALATION AEROSOL SOL. (2-4 PUFFS EVERY 4-6 HRS AS NEEDED)
  3. ALBUTEROL SULFATE [Concomitant]
     Active Substance: ALBUTEROL SULFATE
     Indication: Wheezing
  4. PERTZYE [Concomitant]
     Active Substance: PANCRELIPASE AMYLASE\PANCRELIPASE LIPASE\PANCRELIPASE PROTEASE
     Dosage: 16000 CAPSULE (3 WITH EACH SNACK AND 3 WITH EACH MEAL)
     Route: 048
  5. PERTZYE [Concomitant]
     Active Substance: PANCRELIPASE AMYLASE\PANCRELIPASE LIPASE\PANCRELIPASE PROTEASE
     Dosage: 1 CAPSULE WITH EACH MEAL ALONG WITH PERTZYE 16000 (8000 UNIT)
  6. PULMOZYME [Concomitant]
     Active Substance: DORNASE ALFA
     Dosage: 1 AMPULE WITH NEBULIZER EVERY DAY (1 MG/ML INHALATIONAL SOLUTION, 30X2.5 ML)
  7. IBUPROFEN FOR CHILDREN [IBUPROFEN] [Concomitant]
     Indication: Migraine
     Dosage: 5 MILLILITER EVERY 8 HRS (100 MG/5 ML ORAL SUSPENSION)
     Route: 048
  8. FLUTICASONE PROPIONATE [Concomitant]
     Active Substance: FLUTICASONE PROPIONATE
     Dosage: 1 SPRAY EACH NOSTRIL, 1-2 TIMES DAILY (50 MCG)
  9. LORATADINE [Concomitant]
     Active Substance: LORATADINE
     Indication: Hypersensitivity
     Dosage: 5 MILLILITER, DAILY (5 MG/5 ML SYRUP)
     Route: 048
  10. SODIUM CHLORIDE [Concomitant]
     Active Substance: SODIUM CHLORIDE
     Dosage: 1 AMPULE, BID WITH NEBULIZER (7%)
  11. MIRALAX [Concomitant]
     Active Substance: POLYETHYLENE GLYCOL 3350
     Indication: Constipation
     Dosage: ONE HALF OR ONE CAPFUL MIXED WITH 1.8 OUNCES OF LIQUID, QD AS NEEDED
     Route: 048
  12. BACTRIM [Concomitant]
     Active Substance: SULFAMETHOXAZOLE\TRIMETHOPRIM
     Dosage: 1.5 TABLETS, BID (400-80 MG)
     Route: 048
  13. PROAIR HFA [Concomitant]
     Active Substance: ALBUTEROL SULFATE
     Indication: Cough
     Dosage: 2-4 PUFFS EVERY 4-6 HOURS AS NEEDED (108 (90 BASE MCG/ACT INHALATION AEROSOL SOL.)
  14. PROAIR HFA [Concomitant]
     Active Substance: ALBUTEROL SULFATE
     Indication: Wheezing

REACTIONS (1)
  - Nasal polyps [Not Recovered/Not Resolved]

NARRATIVE: CASE EVENT DATE: 20210107
